FAERS Safety Report 9155351 (Version 1)
Quarter: 2013Q1

REPORT INFORMATION
  Report Type: Spontaneous
  Country: AR (occurrence: AR)
  Receive Date: 20130311
  Receipt Date: 20130311
  Transmission Date: 20140127
  Serious: Yes (Hospitalization, Other)
  Sender: FDA-Public Use
  Company Number: AR-ROCHE-1198678

PATIENT
  Sex: Male

DRUGS (2)
  1. LUCENTIS [Suspect]
     Indication: MACULOPATHY
     Route: 050
     Dates: start: 20110609
  2. LUCENTIS [Suspect]
     Route: 050
     Dates: start: 20120319, end: 20120319

REACTIONS (2)
  - Erysipelas [Recovering/Resolving]
  - Chronic hepatitis C [Recovering/Resolving]
